FAERS Safety Report 18560117 (Version 1)
Quarter: 2020Q4

REPORT INFORMATION
  Report Type: Spontaneous
  Country: DE (occurrence: DE)
  Receive Date: 20201130
  Receipt Date: 20201130
  Transmission Date: 20210114
  Serious: Yes (Hospitalization, Disabling)
  Sender: FDA-Public Use
  Company Number: DE-JNJFOC-20201145177

PATIENT
  Age: 41 Year
  Sex: Male
  Weight: 110 kg

DRUGS (1)
  1. STELARA [Suspect]
     Active Substance: USTEKINUMAB
     Indication: PSORIASIS
     Route: 058
     Dates: start: 20160721

REACTIONS (2)
  - Dural arteriovenous fistula [Unknown]
  - Cerebral venous sinus thrombosis [Unknown]

NARRATIVE: CASE EVENT DATE: 20201001
